FAERS Safety Report 11754990 (Version 1)
Quarter: 2015Q4

REPORT INFORMATION
  Report Type: Report from Study
  Country: FR (occurrence: FR)
  Receive Date: 20151119
  Receipt Date: 20151119
  Transmission Date: 20160304
  Serious: Yes (Other)
  Sender: FDA-Public Use
  Company Number: FR-JNJFOC-20151113825

PATIENT

DRUGS (2)
  1. RISPERDAL [Suspect]
     Active Substance: RISPERIDONE
     Indication: HALLUCINATION, AUDITORY
     Route: 065
  2. RISPERDAL [Suspect]
     Active Substance: RISPERIDONE
     Indication: HALLUCINATION, AUDITORY
     Route: 065
     Dates: end: 201508

REACTIONS (5)
  - Insomnia [Unknown]
  - Hallucination [Recovered/Resolved]
  - Impatience [Unknown]
  - Energy increased [Unknown]
  - Nipple pain [Not Recovered/Not Resolved]

NARRATIVE: CASE EVENT DATE: 201402
